FAERS Safety Report 21949743 (Version 1)
Quarter: 2023Q1

REPORT INFORMATION
  Report Type: Spontaneous
  Country: GB (occurrence: GB)
  Receive Date: 20230203
  Receipt Date: 20230203
  Transmission Date: 20230417
  Serious: Yes (Other)
  Sender: FDA-Public Use
  Company Number: GB-AMGEN-GBRSP2023013391

PATIENT

DRUGS (4)
  1. ADALIMUMAB [Suspect]
     Active Substance: ADALIMUMAB
     Indication: Crohn^s disease
     Dosage: UNK
     Route: 065
     Dates: start: 20160628, end: 20170701
  2. STELARA [Concomitant]
     Active Substance: USTEKINUMAB
     Indication: Product used for unknown indication
     Dosage: 90 MILLIGRAM, Q3MO
     Dates: start: 20200729
  3. STELARA [Concomitant]
     Active Substance: USTEKINUMAB
     Dosage: 90 MILLIGRAM, Q8WK
     Dates: start: 20210113
  4. ENTYVIO [Concomitant]
     Active Substance: VEDOLIZUMAB
     Indication: Product used for unknown indication
     Dosage: UNK
     Dates: start: 201709, end: 2018

REACTIONS (5)
  - Fistula of small intestine [Unknown]
  - Gastrointestinal wall thickening [Unknown]
  - Therapeutic product effect decreased [Unknown]
  - Enteritis [Unknown]
  - Enteritis [Unknown]

NARRATIVE: CASE EVENT DATE: 20210225
